FAERS Safety Report 5974334-3 (Version None)
Quarter: 2008Q4

REPORT INFORMATION
  Report Type: 
  Country: None (occurrence: None)
  Receive Date: 20081201
  Receipt Date: 20081126
  Transmission Date: 20090506
  Serious: Yes (Other)
  Sender: FDA-Public Use
  Company Number: US-PFIZER INC-2008089692

PATIENT
  Sex: Male
  Weight: 81.6 kg

DRUGS (10)
  1. ZOLOFT [Suspect]
     Indication: DEPRESSION
     Route: 048
     Dates: start: 19970101, end: 20081101
  2. SOLU-MEDROL [Concomitant]
  3. ZENAPAX [Concomitant]
  4. COPAXONE [Concomitant]
  5. BACLOFEN [Concomitant]
  6. PROVIGIL [Concomitant]
  7. WARFARIN SODIUM [Concomitant]
  8. CYMBALTA [Concomitant]
  9. FOSAMAX [Concomitant]
  10. AMBIEN [Concomitant]

REACTIONS (4)
  - MYCOSIS FUNGOIDES [None]
  - NEOPLASM MALIGNANT [None]
  - POLYMORPHIC LIGHT ERUPTION [None]
  - RASH [None]
